FAERS Safety Report 15990796 (Version 1)
Quarter: 2019Q1

REPORT INFORMATION
  Report Type: Spontaneous
  Country: US (occurrence: US)
  Receive Date: 20190221
  Receipt Date: 20190221
  Transmission Date: 20190418
  Serious: Yes (Hospitalization)
  Sender: FDA-Public Use
  Company Number: US-TEVA-2019-US-1013767

PATIENT
  Age: 14 Year
  Sex: Female

DRUGS (4)
  1. DAUNORUBICIN [Suspect]
     Active Substance: DAUNORUBICIN
     Indication: ACUTE MYELOID LEUKAEMIA
     Dosage: CONVENTIONAL CHEMOTHERAPY - 2 TIMES 3 DAYS PER CYCLE FOR TWO CYCLES OF REMISSION INDUCTION
     Route: 065
  2. MITOXANTRONE [Suspect]
     Active Substance: MITOXANTRONE HYDROCHLORIDE
     Indication: ACUTE MYELOID LEUKAEMIA
     Dosage: CONVENTIONAL CHEMOTHERAPY: 2; 12 MG/M2 PER DOSE DAILY; FOUR TOTAL DOSES; DAY 4: MITOXANTRONE OMITTED
     Route: 065
  3. CYTARABINE. [Concomitant]
     Active Substance: CYTARABINE
     Indication: ACUTE MYELOID LEUKAEMIA
     Dosage: CONVENTIONAL CHEMOTHERAPY - TWO CYCLES OF REMISSION INDUCTION FOLLOWED BY INTENSIFICATION 1 (HIGH...
     Route: 065
  4. ETOPOSIDE. [Concomitant]
     Active Substance: ETOPOSIDE
     Indication: ACUTE MYELOID LEUKAEMIA
     Dosage: CONVENTIONAL CHEMOTHERAPY - TWO CYCLES OF REMISSION INDUCTION AND INTENSIFICATION 1
     Route: 065

REACTIONS (3)
  - Cardiomegaly [Unknown]
  - Left ventricular dysfunction [Recovered/Resolved]
  - Pulmonary congestion [Unknown]
